FAERS Safety Report 19309602 (Version 1)
Quarter: 2021Q2

REPORT INFORMATION
  Report Type: Spontaneous
  Country: JP (occurrence: JP)
  Receive Date: 20210526
  Receipt Date: 20210526
  Transmission Date: 20210717
  Serious: Yes (Death, Other)
  Sender: FDA-Public Use
  Company Number: JP-009507513-2104JPN000149J

PATIENT
  Age: 71 Year
  Sex: Male

DRUGS (4)
  1. AXITINIB [Concomitant]
     Active Substance: AXITINIB
     Dosage: 6 MILLIGRAM
     Route: 048
     Dates: end: 2021
  2. KEYTRUDA [Suspect]
     Active Substance: PEMBROLIZUMAB
     Dosage: UNK, EVERY 6 WEEKS
     Route: 041
     Dates: start: 2021, end: 2021
  3. KEYTRUDA [Suspect]
     Active Substance: PEMBROLIZUMAB
     Indication: RENAL CELL CARCINOMA
     Dosage: 200 MILLIGRAM, Q3W
     Route: 041
     Dates: start: 202012, end: 2021
  4. AXITINIB [Concomitant]
     Active Substance: AXITINIB
     Indication: RENAL CELL CARCINOMA
     Dosage: 5 MILLIGRAM, BID
     Route: 048
     Dates: start: 202012

REACTIONS (5)
  - Stomatitis [Unknown]
  - Sepsis [Fatal]
  - Palmar-plantar erythrodysaesthesia syndrome [Unknown]
  - Hypothyroidism [Unknown]
  - Hepatic function abnormal [Unknown]

NARRATIVE: CASE EVENT DATE: 2021
